FAERS Safety Report 8916092 (Version 1)
Quarter: 2012Q4

REPORT INFORMATION
  Report Type: 
  Country: US (occurrence: US)
  Receive Date: 20121119
  Receipt Date: 20121119
  Transmission Date: 20130627
  Serious: No
  Sender: FDA-Public Use
  Company Number: US-009507513-1211USA002397

PATIENT
  Sex: Male

DRUGS (2)
  1. PEGINTRON [Suspect]
     Indication: HEPATITIS C
     Dosage: UNK
     Route: 058
     Dates: start: 20120101, end: 20120301
  2. REBETOL [Suspect]
     Dosage: UNK
     Route: 048
     Dates: start: 20120101, end: 20120301

REACTIONS (1)
  - Mouth ulceration [Unknown]
